FAERS Safety Report 13066885 (Version 1)
Quarter: 2016Q4

REPORT INFORMATION
  Report Type: Spontaneous
  Country: JP (occurrence: JP)
  Receive Date: 20161227
  Receipt Date: 20161227
  Transmission Date: 20170207
  Serious: Yes (Hospitalization)
  Sender: FDA-Public Use
  Company Number: JP-DSJP-DSJ-2016-142932

PATIENT

DRUGS (4)
  1. LIXIANA TABLETS [Suspect]
     Active Substance: EDOXABAN TOSILATE MONOHYDRATE
     Indication: POST PROCEDURAL COMPLICATION
     Dosage: UNK
     Route: 065
  2. AMIODARON                          /00133101/ [Suspect]
     Active Substance: AMIODARONE
     Indication: POST PROCEDURAL COMPLICATION
     Dosage: UNK
     Route: 065
  3. INSULIN [Concomitant]
     Active Substance: INSULIN NOS
     Indication: DIABETES MELLITUS
     Dosage: UNK
     Route: 065
     Dates: start: 1997
  4. DILTIAZEM. [Suspect]
     Active Substance: DILTIAZEM
     Indication: POST PROCEDURAL COMPLICATION
     Dosage: UNK
     Route: 065

REACTIONS (5)
  - Purpura [Recovered/Resolved]
  - Drug interaction [Unknown]
  - Coagulation test abnormal [Unknown]
  - Haematoma [Recovering/Resolving]
  - Renal impairment [Unknown]
